FAERS Safety Report 23256880 (Version 1)
Quarter: 2023Q4

REPORT INFORMATION
  Report Type: Spontaneous
  Country: US (occurrence: US)
  Receive Date: 20231204
  Receipt Date: 20231204
  Transmission Date: 20240110
  Serious: Yes (Hospitalization)
  Sender: FDA-Public Use
  Company Number: US-RECORDATI RARE DISEASE INC.-2023008450

PATIENT

DRUGS (2)
  1. PANHEMATIN [Suspect]
     Active Substance: HEMIN
     Indication: Porphyria acute
     Dosage: 3 MG/KG DAILY (RECONSTITUTED WITH STERILE WATER) 3 MG/KG DAILY FOR 3 DAYS
  2. GIVOSIRAN [Concomitant]
     Active Substance: GIVOSIRAN
     Indication: Porphyria acute

REACTIONS (2)
  - International normalised ratio increased [Recovered/Resolved]
  - Thrombocytopenia [Recovered/Resolved]
